FAERS Safety Report 9989300 (Version 1)
Quarter: 2014Q1

REPORT INFORMATION
  Report Type: Not Available
  Country: FR (occurrence: FR)
  Receive Date: 20140310
  Receipt Date: 20140310
  Transmission Date: 20141002
  Serious: Yes (Hospitalization, Disabling)
  Sender: FDA-Public Use
  Company Number: FR-ASTELLAS-2014US002292

PATIENT
  Age: 68 Year
  Sex: Female

DRUGS (2)
  1. TARCEVA [Suspect]
     Indication: LUNG ADENOCARCINOMA
     Dosage: UNK
     Route: 048
     Dates: start: 201001, end: 201305
  2. TARCEVA [Suspect]
     Dosage: UNK
     Route: 048
     Dates: start: 201309

REACTIONS (1)
  - Adenocarcinoma pancreas [Recovered/Resolved with Sequelae]
